FAERS Safety Report 4520922-0 (Version None)
Quarter: 2004Q4

REPORT INFORMATION
  Report Type: 
  Country: None (occurrence: None)
  Receive Date: 20041206
  Receipt Date: 20041206
  Transmission Date: 20050328
  Serious: Yes (Other)
  Sender: FDA-Public Use
  Company Number: None

PATIENT
  Sex: Male
  Weight: 97.5234 kg

DRUGS (1)
  1. BEXTRA [Suspect]
     Indication: PERIARTHRITIS
     Dosage: 10MG X1 ORAL
     Route: 048
     Dates: start: 20041123, end: 20041124

REACTIONS (1)
  - CHEST PAIN [None]
